FAERS Safety Report 19400057 (Version 2)
Quarter: 2021Q3

REPORT INFORMATION
  Report Type: Spontaneous
  Country: US (occurrence: US)
  Receive Date: 20210610
  Receipt Date: 20210727
  Transmission Date: 20211014
  Serious: No
  Sender: FDA-Public Use
  Company Number: US-INCYTE CORPORATION-2021IN004903

PATIENT

DRUGS (3)
  1. JAKAFI [Suspect]
     Active Substance: RUXOLITINIB
     Indication: HAEMOPHAGOCYTIC LYMPHOHISTIOCYTOSIS
     Dosage: 5 MILLIGRAM, BID
     Route: 048
  2. PROMETHAZINE [Concomitant]
     Active Substance: PROMETHAZINE HYDROCHLORIDE
     Indication: PRODUCT USED FOR UNKNOWN INDICATION
     Route: 065
  3. BENZONATATE. [Concomitant]
     Active Substance: BENZONATATE
     Indication: PRODUCT USED FOR UNKNOWN INDICATION
     Route: 065

REACTIONS (1)
  - Off label use [Unknown]
